FAERS Safety Report 23074775 (Version 2)
Quarter: 2023Q4

REPORT INFORMATION
  Report Type: Spontaneous
  Country: FR (occurrence: FR)
  Receive Date: 20231017
  Receipt Date: 20231101
  Transmission Date: 20240109
  Serious: Yes (Other)
  Sender: FDA-Public Use
  Company Number: FR-Atnahs Limited-ATNAHS20210100209

PATIENT
  Age: 19 Year
  Sex: Male

DRUGS (10)
  1. VALIUM [Suspect]
     Active Substance: DIAZEPAM
     Indication: Agitation
     Route: 048
     Dates: start: 20201013, end: 20201130
  2. VALIUM [Suspect]
     Active Substance: DIAZEPAM
  3. RIVOTRIL [Suspect]
     Active Substance: CLONAZEPAM
     Indication: Agitation
     Route: 048
     Dates: start: 20201020, end: 20201028
  4. HALDOL [Suspect]
     Active Substance: HALOPERIDOL
     Indication: Mania
     Route: 048
     Dates: start: 20201014, end: 20201020
  5. CYAMEMAZINE [Suspect]
     Active Substance: CYAMEMAZINE
     Indication: Mania
     Dosage: MOST RECENT DOSE PRIOR TO AE 16/OCT/2020
     Route: 048
     Dates: start: 20201014
  6. VALPROATE SODIUM [Suspect]
     Active Substance: VALPROATE SODIUM
     Indication: Mania
     Route: 048
     Dates: start: 20201020, end: 20201201
  7. LEVOMEPROMAZINE [Suspect]
     Active Substance: LEVOMEPROMAZINE
     Indication: Agitation
     Dosage: MOST RECENT DOSE PRIOR TO AE 04/NOV/2020
     Route: 048
     Dates: start: 20201019
  8. LOXAPINE [Suspect]
     Active Substance: LOXAPINE
     Indication: Agitation
     Route: 048
     Dates: start: 20201013, end: 20201022
  9. RISPERDAL [Suspect]
     Active Substance: RISPERIDONE
     Indication: Mania
     Route: 048
     Dates: start: 20201020, end: 20201104
  10. ZYPREXA [Suspect]
     Active Substance: OLANZAPINE
     Indication: Mania
     Route: 048
     Dates: start: 20201014, end: 20201020

REACTIONS (3)
  - Lymphopenia [Not Recovered/Not Resolved]
  - Thrombocytopenia [Not Recovered/Not Resolved]
  - Neutropenia [Not Recovered/Not Resolved]

NARRATIVE: CASE EVENT DATE: 20201020
